FAERS Safety Report 4923286-3 (Version None)
Quarter: 2006Q1

REPORT INFORMATION
  Report Type: 
  Country: None (occurrence: None)
  Receive Date: 20060223
  Receipt Date: 20060223
  Transmission Date: 20060701
  Serious: Yes (Hospitalization)
  Sender: FDA-Public Use
  Company Number: None

PATIENT
  Sex: Male

DRUGS (14)
  1. WARFARIN  5 MG [Suspect]
     Indication: ATRIAL FLUTTER
     Dosage: 2.5 MG MWF/5 MG REST DAILY PO
     Route: 048
  2. ALBUTEROL [Concomitant]
  3. ASPIRIN [Concomitant]
  4. AZITHROMYCIN [Concomitant]
  5. CEFTRIAXONE [Concomitant]
  6. COLCHICINE [Concomitant]
  7. DIGOXIN [Concomitant]
  8. DILTIAZEM HCL [Concomitant]
  9. DOCUSATE [Concomitant]
  10. FLUNISOLIDE [Concomitant]
  11. IPRATROPIUM BROMIDE [Concomitant]
  12. METHYLPREDNISOLONE [Concomitant]
  13. OMEPRAZOLE [Concomitant]
  14. SIMVASTATIN [Concomitant]

REACTIONS (1)
  - GASTROINTESTINAL HAEMORRHAGE [None]
